FAERS Safety Report 6597824-1 (Version None)
Quarter: 2010Q1

REPORT INFORMATION
  Report Type: 
  Country: None (occurrence: None)
  Receive Date: 20100216
  Receipt Date: 20100201
  Transmission Date: 20100710
  Serious: Yes (Other)
  Sender: FDA-Public Use
  Company Number: 2010AL000771

PATIENT
  Age: 33 Year
  Sex: Female

DRUGS (2)
  1. RANITIDINE [Suspect]
     Dosage: PO
     Route: 048
  2. CARBAMAZEPINE [Suspect]

REACTIONS (2)
  - CONDITION AGGRAVATED [None]
  - EPILEPSY [None]
